FAERS Safety Report 11607822 (Version 3)
Quarter: 2016Q1

REPORT INFORMATION
  Report Type: Report from Study
  Country: CA (occurrence: CA)
  Receive Date: 20151007
  Receipt Date: 20160118
  Transmission Date: 20160525
  Serious: Yes (Death, Life-Threatening, Other)
  Sender: FDA-Public Use
  Company Number: CA-JNJFOC-20150617790

PATIENT
  Age: 69 Year
  Sex: Male
  Weight: 81 kg

DRUGS (27)
  1. CESAMET [Concomitant]
     Active Substance: NABILONE
     Route: 065
  2. BUPROPION. [Concomitant]
     Active Substance: BUPROPION
     Dosage: 150
     Route: 048
  3. METHADONE [Concomitant]
     Active Substance: METHADONE HYDROCHLORIDE
     Route: 065
  4. SUPRIDOL [Concomitant]
     Route: 065
  5. REMICADE [Suspect]
     Active Substance: INFLIXIMAB
     Indication: ANKYLOSING SPONDYLITIS
     Route: 042
     Dates: start: 20101001, end: 20150915
  6. TYLENOL [Concomitant]
     Active Substance: ACETAMINOPHEN
     Dosage: 500 PRN
     Route: 065
  7. WELLBUTRIN [Concomitant]
     Active Substance: BUPROPION HYDROCHLORIDE
     Dosage: 150
     Route: 065
  8. SPIRIVA [Concomitant]
     Active Substance: TIOTROPIUM BROMIDE MONOHYDRATE
     Dosage: 18 UNSPECIFIED UNITS OD
     Route: 065
  9. TRAMADOL. [Concomitant]
     Active Substance: TRAMADOL
     Dosage: 10 Q 6 HRS
     Route: 065
  10. VALSARTAN AND HYDROCHLOROTHIAZIDE [Concomitant]
     Active Substance: HYDROCHLOROTHIAZIDE\VALSARTAN
     Dosage: 320/25
     Route: 065
  11. OXYNEO [Concomitant]
     Active Substance: OXYCODONE
     Dosage: 15
     Route: 065
  12. REMICADE [Suspect]
     Active Substance: INFLIXIMAB
     Indication: ANKYLOSING SPONDYLITIS
     Route: 042
     Dates: start: 20121208
  13. VALSARTAN. [Concomitant]
     Active Substance: VALSARTAN
     Dosage: 320/12.5
     Route: 065
     Dates: end: 20151204
  14. PREGABALIN. [Concomitant]
     Active Substance: PREGABALIN
     Dosage: 300
     Route: 065
  15. ACETAMINOPHEN. [Concomitant]
     Active Substance: ACETAMINOPHEN
     Route: 065
  16. CESAMET [Concomitant]
     Active Substance: NABILONE
     Route: 065
  17. ATORVASTATIN [Concomitant]
     Active Substance: ATORVASTATIN
     Route: 065
     Dates: end: 20151204
  18. OXYNEO [Concomitant]
     Active Substance: OXYCODONE
     Dosage: 15
     Route: 065
  19. KETOROLAC [Concomitant]
     Active Substance: KETOROLAC\KETOROLAC TROMETHAMINE
     Route: 065
  20. OXYCODONE [Concomitant]
     Active Substance: OXYCODONE
     Route: 065
  21. OXYCOCET [Concomitant]
     Active Substance: ACETAMINOPHEN\OXYCODONE HYDROCHLORIDE
     Route: 065
  22. NABILONE [Concomitant]
     Active Substance: NABILONE
     Route: 065
  23. AMLODIPINE [Concomitant]
     Active Substance: AMLODIPINE BESYLATE
     Route: 065
     Dates: end: 20151204
  24. WELLBUTRIN [Concomitant]
     Active Substance: BUPROPION HYDROCHLORIDE
     Dosage: 150
     Route: 065
  25. ATORVASTATIN [Concomitant]
     Active Substance: ATORVASTATIN
     Dosage: 10 OD
     Route: 065
  26. ATORVASTATIN [Concomitant]
     Active Substance: ATORVASTATIN
     Dosage: 10 OD
     Route: 065
  27. TYLENOL [Concomitant]
     Active Substance: ACETAMINOPHEN
     Dosage: 500
     Route: 065

REACTIONS (4)
  - Pancoast^s tumour [Fatal]
  - Metastases to central nervous system [Not Recovered/Not Resolved]
  - Vitrectomy [Unknown]
  - Horner^s syndrome [Unknown]

NARRATIVE: CASE EVENT DATE: 201504
